FAERS Safety Report 7178871-8 (Version None)
Quarter: 2010Q4

REPORT INFORMATION
  Report Type: 
  Country: None (occurrence: None)
  Receive Date: 20101221
  Receipt Date: 20101210
  Transmission Date: 20110411
  Serious: Yes (Other)
  Sender: FDA-Public Use
  Company Number: CA-JNJFOC-20101205151

PATIENT
  Sex: Female
  Weight: 127 kg

DRUGS (16)
  1. REMICADE [Suspect]
     Indication: PSORIASIS
     Route: 042
  2. REMICADE [Suspect]
     Dosage: 9TH INFUSION
     Route: 042
  3. METHADONE [Concomitant]
  4. TRAZODONE HCL [Concomitant]
  5. SEROQUEL [Concomitant]
  6. INSULIN [Concomitant]
  7. AMITRIPTYLINE [Concomitant]
  8. SYNTHROID [Concomitant]
  9. NOVOSPIROTON [Concomitant]
  10. RAMIPRIL [Concomitant]
  11. PREDNISONE [Concomitant]
  12. FUROSEMIDE [Concomitant]
  13. OXYBUTYNIN [Concomitant]
  14. CARVEDILOL [Concomitant]
  15. PROZAC [Concomitant]
  16. NEXIUM [Concomitant]

REACTIONS (8)
  - ABDOMINAL PAIN [None]
  - CHILLS [None]
  - DYSPNOEA [None]
  - FLUSHING [None]
  - INFUSION RELATED REACTION [None]
  - MUSCLE SPASMS [None]
  - NAUSEA [None]
  - PANIC REACTION [None]
